FAERS Safety Report 7942005-X (Version None)
Quarter: 2011Q4

REPORT INFORMATION
  Report Type: 
  Country: None (occurrence: None)
  Receive Date: 20111122
  Receipt Date: 20111122
  Transmission Date: 20120403
  Serious: Yes (Other)
  Sender: FDA-Public Use
  Company Number: None

PATIENT
  Age: 63 Year
  Sex: Male
  Weight: 72.5755 kg

DRUGS (1)
  1. ZICAM - DISTRIBUTED BY ZICAM LLC PHOENIX ARIZONA 85016 [Suspect]
     Indication: NASOPHARYNGITIS
     Dosage: ONE TABLET
     Dates: start: 20111102

REACTIONS (2)
  - PRODUCT LABEL ISSUE [None]
  - FEELING ABNORMAL [None]
